FAERS Safety Report 19794223 (Version 1)
Quarter: 2021Q3

REPORT INFORMATION
  Report Type: Spontaneous
  Country: FR (occurrence: FR)
  Receive Date: 20210906
  Receipt Date: 20210906
  Transmission Date: 20211014
  Serious: Yes (Hospitalization, Other)
  Sender: FDA-Public Use
  Company Number: FR-009507513-2109FRA000538

PATIENT
  Sex: Male

DRUGS (2)
  1. KEYTRUDA [Suspect]
     Active Substance: PEMBROLIZUMAB
     Indication: SQUAMOUS CELL CARCINOMA
     Dosage: UNK
  2. CARBOPLATIN;TAXOL [Suspect]
     Active Substance: CARBOPLATIN\PACLITAXEL
     Indication: SQUAMOUS CELL CARCINOMA

REACTIONS (3)
  - Confusional state [Unknown]
  - Eyelid ptosis [Unknown]
  - Pulmonary embolism [Unknown]
